FAERS Safety Report 7492040-3 (Version None)
Quarter: 2011Q2

REPORT INFORMATION
  Report Type: 
  Country: None (occurrence: None)
  Receive Date: 20110519
  Receipt Date: 20110509
  Transmission Date: 20111010
  Serious: Yes (Death)
  Sender: FDA-Public Use
  Company Number: US-JNJFOC-20110400036

PATIENT
  Sex: Female
  Weight: 69.4 kg

DRUGS (3)
  1. TEGRETOL [Suspect]
     Indication: SLEEP DISORDER THERAPY
  2. RISPERDAL [Suspect]
     Indication: DEPRESSION
     Route: 065
  3. DIPHENHYDRAMINE HCL [Suspect]
     Indication: SLEEP DISORDER THERAPY

REACTIONS (1)
  - COMPLETED SUICIDE [None]
